FAERS Safety Report 8764697 (Version 2)
Quarter: 2012Q4

REPORT INFORMATION
  Report Type: 
  Country: NZ (occurrence: GB)
  Receive Date: 20120831
  Receipt Date: 20121101
  Transmission Date: 20130627
  Serious: Yes (Other)
  Sender: FDA-Public Use
  Company Number: NZ-PFIZER INC-2012210174

PATIENT
  Sex: Female

DRUGS (1)
  1. VIOXX [Suspect]
     Dosage: UNK

REACTIONS (2)
  - Disseminated intravascular coagulation [Unknown]
  - Leg amputation [Unknown]
